FAERS Safety Report 20952277 (Version 1)
Quarter: 2022Q2

REPORT INFORMATION
  Report Type: Spontaneous
  Country: US (occurrence: None)
  Receive Date: 20220612
  Receipt Date: 20220612
  Transmission Date: 20220721
  Serious: Yes (Life-Threatening, Disabling, Other)
  Sender: FDA-Public Use
  Company Number: None

PATIENT
  Age: 32 Year
  Sex: Female
  Weight: 132.9 kg

DRUGS (6)
  1. NEXPLANON [Suspect]
     Active Substance: ETONOGESTREL
  2. CARVEDILOL [Concomitant]
  3. clopedigril [Concomitant]
  4. RAMIPRIL [Concomitant]
     Active Substance: RAMIPRIL
  5. atorvistan [Concomitant]
  6. ASPIRIN [Concomitant]
     Active Substance: ASPIRIN

REACTIONS (3)
  - Thrombosis [None]
  - Myocardial infarction [None]
  - Aortic aneurysm [None]

NARRATIVE: CASE EVENT DATE: 20171121
